FAERS Safety Report 4846130-1 (Version None)
Quarter: 2005Q4

REPORT INFORMATION
  Report Type: 
  Country: None (occurrence: None)
  Receive Date: 20051202
  Receipt Date: 20051202
  Transmission Date: 20060501
  Serious: Yes (Hospitalization)
  Sender: FDA-Public Use
  Company Number: None

PATIENT
  Sex: Male
  Weight: 13.6079 kg

DRUGS (1)
  1. EPHEDRINE+ GUAIFENESIN (MAXIMUM STRENGTH) 2-WAY? -CHEWED OFF BY INFANT [Suspect]
     Dosage: 6 MINITABS-ASTHMAS RELIEF PO
     Route: 048
     Dates: start: 20051124

REACTIONS (1)
  - ACCIDENTAL DRUG INTAKE BY CHILD [None]
